FAERS Safety Report 20883888 (Version 1)
Quarter: 2022Q2

REPORT INFORMATION
  Report Type: Spontaneous
  Country: US (occurrence: US)
  Receive Date: 20220527
  Receipt Date: 20220527
  Transmission Date: 20220720
  Serious: No
  Sender: FDA-Public Use
  Company Number: US-PFIZER INC-202200752136

PATIENT
  Age: 72 Year
  Sex: Male
  Weight: 79.38 kg

DRUGS (2)
  1. PAXLOVID [Suspect]
     Active Substance: NIRMATRELVIR\RITONAVIR
     Indication: COVID-19 treatment
     Dosage: 3 DOSE IN THE MORNING AND 3 DOSE IN THE EVENING FOR 5 DAYS
  2. POMALYST [Concomitant]
     Active Substance: POMALIDOMIDE
     Dosage: UNK

REACTIONS (2)
  - COVID-19 [Unknown]
  - Disease recurrence [Unknown]
